FAERS Safety Report 8959181 (Version 1)
Quarter: 2012Q4

REPORT INFORMATION
  Report Type: 
  Country: JP (occurrence: JP)
  Receive Date: 20121212
  Receipt Date: 20121212
  Transmission Date: 20130627
  Serious: Yes (Other)
  Sender: FDA-Public Use
  Company Number: JP-009507513-2012SP030091

PATIENT
  Age: 60 Year
  Sex: Male
  Weight: 65 kg

DRUGS (10)
  1. PEGINTERFERON ALFA-2B [Suspect]
     Indication: HEPATITIS C
     Dosage: 1.0 ?g/kg, QW
     Route: 058
     Dates: start: 20110411
  2. REBETOL [Suspect]
     Indication: HEPATITIS C
     Dosage: 400 mg, QD
     Route: 048
     Dates: start: 20120411
  3. REBETOL [Suspect]
     Dosage: 200 mg, QD
     Route: 048
     Dates: start: 20120425
  4. TELAPREVIR [Suspect]
     Indication: HEPATITIS C
     Dosage: 1500 mg, QD
     Route: 048
     Dates: start: 20120411, end: 20120518
  5. MAINTATE [Concomitant]
     Dosage: 5 mg, QD
     Route: 048
  6. GASTER [Concomitant]
     Indication: PROPHYLAXIS
     Dosage: FORM: POR
     Route: 048
  7. ATELEC [Concomitant]
     Dosage: FORM: POR
     Route: 048
  8. THYRADIN [Concomitant]
     Dosage: FORM: POR
     Route: 048
  9. FEBURIC [Concomitant]
     Dosage: FORM: POR
     Route: 048
  10. SOLANAX [Concomitant]
     Indication: PROPHYLAXIS
     Dosage: FORM: POR
     Route: 048

REACTIONS (1)
  - Erythema [Not Recovered/Not Resolved]
